FAERS Safety Report 17357697 (Version 1)
Quarter: 2020Q1

REPORT INFORMATION
  Report Type: Spontaneous
  Country: US (occurrence: US)
  Receive Date: 20200131
  Receipt Date: 20200131
  Transmission Date: 20200409
  Serious: No
  Sender: FDA-Public Use
  Company Number: US-GALDERMA-US19040108

PATIENT
  Age: 16 Year
  Sex: Male

DRUGS (3)
  1. BENZOYL PEROXIDE (BENZOYL PEROXIDE) [Suspect]
     Active Substance: BENZOYL PEROXIDE
     Indication: ACNE
     Dosage: 10%
     Route: 061
     Dates: start: 201906
  2. DIFFERIN GEL [Suspect]
     Active Substance: ADAPALENE
     Indication: ACNE
     Dosage: 0.1%
     Route: 061
     Dates: start: 201906
  3. CETAPHIL DAILY FACIAL CLEANSER [Suspect]
     Active Substance: COSMETICS
     Indication: ACNE
     Route: 061
     Dates: start: 201906

REACTIONS (2)
  - Dry skin [Unknown]
  - Intentional product misuse [Recovered/Resolved]

NARRATIVE: CASE EVENT DATE: 201906
